FAERS Safety Report 26151944 (Version 1)
Quarter: 2025Q4

REPORT INFORMATION
  Report Type: Spontaneous
  Country: CN (occurrence: CN)
  Receive Date: 20251214
  Receipt Date: 20251214
  Transmission Date: 20260117
  Serious: Yes (Hospitalization)
  Sender: ROCHE
  Company Number: CN-ROCHE-10000458788

PATIENT
  Age: 62 Year
  Sex: Female

DRUGS (3)
  1. HERCEPTIN [Suspect]
     Active Substance: TRASTUZUMAB
     Indication: Breast cancer
     Route: 041
     Dates: start: 20251105, end: 20251105
  2. DOCETAXEL [Suspect]
     Active Substance: DOCETAXEL
     Indication: Breast cancer
     Route: 041
     Dates: start: 20251105, end: 20251105
  3. SODIUM CHLORIDE [Concomitant]
     Active Substance: SODIUM CHLORIDE
     Route: 041
     Dates: start: 20251105, end: 20251105

REACTIONS (1)
  - Myelosuppression [Recovering/Resolving]

NARRATIVE: CASE EVENT DATE: 20251112
